FAERS Safety Report 4874227-9 (Version None)
Quarter: 2006Q1

REPORT INFORMATION
  Report Type: 
  Country: None (occurrence: None)
  Receive Date: 20060103
  Receipt Date: 20060103
  Transmission Date: 20060701
  Serious: Yes (Hospitalization)
  Sender: FDA-Public Use
  Company Number: None

PATIENT
  Age: 72 Year
  Sex: Male
  Weight: 87.5442 kg

DRUGS (6)
  1. 13 CIS-RETINOINC ACID [Suspect]
     Indication: PROSTATE CANCER
     Dosage: 70 MG PO
     Route: 048
     Dates: start: 20051227
  2. INTERFERON ALPHA-2B [Suspect]
     Dosage: 12 MG SC
     Route: 058
     Dates: start: 20051227
  3. ESTRAMUSTINE PHOS. SODIUM [Suspect]
     Indication: PROSTATE CANCER
     Dosage: 840 ML IV
     Route: 042
     Dates: start: 20051227
  4. DOCETAXEL [Suspect]
     Dosage: 82 MG PO
     Route: 048
  5. DEXAMETHASONE TAB [Concomitant]
  6. ACETAMINOPHEN [Concomitant]

REACTIONS (3)
  - PNEUMONIA [None]
  - PULMONARY THROMBOSIS [None]
  - THROMBOSIS [None]
